FAERS Safety Report 17374473 (Version 1)
Quarter: 2020Q1

REPORT INFORMATION
  Report Type: Spontaneous
  Country: CN (occurrence: CN)
  Receive Date: 20200206
  Receipt Date: 20200206
  Transmission Date: 20200409
  Serious: Yes (Hospitalization)
  Sender: FDA-Public Use
  Company Number: CN-UNICHEM PHARMACEUTICALS (USA) INC-UCM202001-000150

PATIENT
  Age: 15 Year
  Sex: Male

DRUGS (6)
  1. DIGOXIN. [Concomitant]
     Active Substance: DIGOXIN
     Indication: ORTHOPNOEA
  2. SACUBITRIL [Suspect]
     Active Substance: SACUBITRIL
     Indication: PALPITATIONS
  3. DIGOXIN. [Concomitant]
     Active Substance: DIGOXIN
     Indication: PALPITATIONS
  4. VALSARTAN. [Suspect]
     Active Substance: VALSARTAN
     Indication: ORTHOPNOEA
  5. SACUBITRIL [Suspect]
     Active Substance: SACUBITRIL
     Indication: ORTHOPNOEA
  6. VALSARTAN. [Suspect]
     Active Substance: VALSARTAN
     Indication: PALPITATIONS

REACTIONS (4)
  - Tachyarrhythmia [Recovered/Resolved]
  - Hypotension [Recovered/Resolved]
  - Atrial tachycardia [Recovered/Resolved]
  - Palpitations [Recovered/Resolved]
